FAERS Safety Report 6275062-X (Version None)
Quarter: 2009Q3

REPORT INFORMATION
  Report Type: 
  Country: None (occurrence: None)
  Receive Date: 20090721
  Receipt Date: 20090714
  Transmission Date: 20100115
  Serious: Yes (Other)
  Sender: FDA-Public Use
  Company Number: JP-BAYER-200912441BYL

PATIENT
  Age: 70 Year
  Sex: Male
  Weight: 62 kg

DRUGS (7)
  1. NEXAVAR [Suspect]
     Indication: RENAL CELL CARCINOMA STAGE IV
     Dosage: UNIT DOSE: 200 MG
     Route: 048
     Dates: start: 20090217, end: 20090428
  2. GASTER D [Concomitant]
     Route: 048
     Dates: start: 20090312, end: 20090416
  3. GASLON N [Concomitant]
     Route: 048
     Dates: start: 20090416
  4. CLEANAL [Concomitant]
     Route: 048
     Dates: start: 20090416
  5. EXCEGRAN [Concomitant]
     Route: 048
     Dates: start: 20090511
  6. DECADRON [Concomitant]
     Route: 048
     Dates: start: 20090512, end: 20090516
  7. RINDERON [Concomitant]
     Route: 048
     Dates: start: 20090626

REACTIONS (5)
  - ALOPECIA [None]
  - HEPATIC FUNCTION ABNORMAL [None]
  - HYPERLIPASAEMIA [None]
  - HYPERTENSION [None]
  - PAIN IN EXTREMITY [None]
